FAERS Safety Report 4281927-0 (Version None)
Quarter: 2004Q1

REPORT INFORMATION
  Report Type: 
  Country: None (occurrence: None)
  Receive Date: 20040128
  Receipt Date: 20040120
  Transmission Date: 20041129
  Serious: Yes (Life-Threatening, Hospitalization)
  Sender: FDA-Public Use
  Company Number: 2003-12-0703

PATIENT
  Age: 68 Year
  Sex: Male
  Weight: 91 kg

DRUGS (4)
  1. BETAMETHASONE DIPROPIONATE [Suspect]
     Indication: BRONCHITIS CHRONIC
     Dosage: INTRAMUSCULAR
     Route: 030
     Dates: start: 20030826, end: 20030826
  2. CEFPODOXIME PROXETIL [Concomitant]
  3. COMBIVENT INHALATION SOLUTION BID [Concomitant]
  4. ULTRA-LEVURE [Concomitant]

REACTIONS (4)
  - ACUTE RESPIRATORY DISTRESS SYNDROME [None]
  - BRONCHOSPASM [None]
  - HYPERHIDROSIS [None]
  - HYPOXIA [None]
